FAERS Safety Report 7493257-4 (Version None)
Quarter: 2011Q2

REPORT INFORMATION
  Report Type: 
  Country: None (occurrence: None)
  Receive Date: 20110520
  Receipt Date: 20110421
  Transmission Date: 20111010
  Serious: Yes (Other)
  Sender: FDA-Public Use
  Company Number: US-BAYER-2010-003001

PATIENT
  Age: 27 Year
  Sex: Female
  Weight: 77.098 kg

DRUGS (3)
  1. YASMIN [Suspect]
     Indication: CONTRACEPTION
     Dosage: UNK
     Route: 048
     Dates: start: 20080301, end: 20081201
  2. YAZ [Suspect]
     Indication: CONTRACEPTION
     Dosage: UNK
     Route: 048
     Dates: start: 20070901, end: 20080301
  3. DROSPIRENONE AND ETHINYL ESTRADIOL [Suspect]
     Indication: CONTRACEPTION
     Dosage: UNK
     Route: 048
     Dates: start: 20081201, end: 20090901

REACTIONS (8)
  - SCAR [None]
  - PAIN [None]
  - CHOLECYSTECTOMY [None]
  - INJURY [None]
  - ANXIETY [None]
  - CHOLECYSTITIS [None]
  - MEDICAL DIET [None]
  - DEPRESSION [None]
